FAERS Safety Report 21657262 (Version 1)
Quarter: 2022Q4

REPORT INFORMATION
  Report Type: Spontaneous
  Country: FR (occurrence: FR)
  Receive Date: 20221129
  Receipt Date: 20221129
  Transmission Date: 20230112
  Serious: Yes (Other)
  Sender: FDA-Public Use
  Company Number: None

PATIENT
  Age: 16 Year
  Sex: Female
  Weight: 60 kg

DRUGS (3)
  1. ETHINYL ESTRADIOL\LEVONORGESTREL [Suspect]
     Active Substance: ETHINYL ESTRADIOL\LEVONORGESTREL
     Indication: Contraception
     Dosage: 1 DF, 1X/DAY
     Route: 048
     Dates: start: 202206, end: 20220922
  2. BROMAZEPAM [Suspect]
     Active Substance: BROMAZEPAM
     Indication: Anxiety
     Dosage: NOT KNOWN, EXCEPT TWICE 0.25 TABLET DAILY
     Route: 048
     Dates: start: 202206, end: 20220930
  3. ZOPICLONE [Suspect]
     Active Substance: ZOPICLONE
     Indication: Anxiety
     Dosage: 7.5 MG, 1X/DAY
     Route: 048
     Dates: start: 202206, end: 20220930

REACTIONS (1)
  - Hepatic cytolysis [Recovering/Resolving]

NARRATIVE: CASE EVENT DATE: 20220901
